FAERS Safety Report 9657843 (Version 1)
Quarter: 2013Q4

REPORT INFORMATION
  Report Type: Spontaneous
  Country: ES (occurrence: ES)
  Receive Date: 20131030
  Receipt Date: 20131030
  Transmission Date: 20140711
  Serious: Yes (Other)
  Sender: FDA-Public Use
  Company Number: ES-SA-THYM-1004021

PATIENT
  Age: 55 Year
  Sex: Male

DRUGS (6)
  1. THYMOGLOBULINE [Suspect]
     Indication: BONE MARROW CONDITIONING REGIMEN
     Dosage: UNK
     Route: 042
     Dates: start: 20120415, end: 20120416
  2. FLUDARABINE [Concomitant]
     Indication: STEM CELL TRANSPLANT
     Route: 042
     Dates: start: 20120412, end: 20120415
  3. MELPHALAN [Concomitant]
     Indication: BONE MARROW CONDITIONING REGIMEN
  4. CAMPATH [Concomitant]
  5. TACROLIMUS [Concomitant]
  6. METHOTREXATE [Concomitant]

REACTIONS (5)
  - Pulmonary oedema [Recovered/Resolved]
  - Oliguria [Recovered/Resolved]
  - Hypotension [Recovered/Resolved]
  - Rash [Recovered/Resolved]
  - Pyrexia [Recovered/Resolved]
